FAERS Safety Report 13251581 (Version 2)
Quarter: 2017Q1

REPORT INFORMATION
  Report Type: Spontaneous
  Country: JP (occurrence: JP)
  Receive Date: 20170220
  Receipt Date: 20170224
  Transmission Date: 20170428
  Serious: Yes (Life-Threatening, Other)
  Sender: FDA-Public Use
  Company Number: JP-HQ SPECIALTY-JP-2017INT000046

PATIENT
  Age: 6 Year
  Sex: Female

DRUGS (5)
  1. DEXMEDETOMIDINE HYDROCHLORIDE. [Suspect]
     Active Substance: DEXMEDETOMIDINE HYDROCHLORIDE
     Dosage: 330 ?G, QD
     Dates: start: 20150102, end: 20150211
  2. MIDAZOLAM [Suspect]
     Active Substance: MIDAZOLAM HYDROCHLORIDE
     Indication: SEDATION
     Dosage: 50 MG, QD
     Dates: start: 20141227, end: 20150109
  3. CHLORAL HYDRATE [Suspect]
     Active Substance: CHLORAL HYDRATE
     Indication: PRODUCT USED FOR UNKNOWN INDICATION
     Dosage: UNK
     Route: 054
  4. DEXMEDETOMIDINE HYDROCHLORIDE. [Suspect]
     Active Substance: DEXMEDETOMIDINE HYDROCHLORIDE
     Indication: SEDATION
     Dosage: 330 ?G, QD
     Route: 041
     Dates: start: 20141227
  5. THIOPENTAL [Suspect]
     Active Substance: THIOPENTAL
     Indication: SEDATION
     Dosage: 480 MG, QD
     Dates: start: 20150102, end: 20150108

REACTIONS (2)
  - Hypoxia [Recovered/Resolved]
  - Increased bronchial secretion [Recovered/Resolved]

NARRATIVE: CASE EVENT DATE: 20141230
